FAERS Safety Report 24277068 (Version 1)
Quarter: 2024Q3

REPORT INFORMATION
  Report Type: Spontaneous
  Country: GB (occurrence: GB)
  Receive Date: 20240903
  Receipt Date: 20240903
  Transmission Date: 20241017
  Serious: Yes (Other)
  Sender: MYLAN
  Company Number: GB-MHRA-TPP30696685C10765644YC1724933131195

PATIENT
  Age: 19 Year
  Sex: Female
  Weight: 70 kg

DRUGS (5)
  1. SERTRALINE [Suspect]
     Active Substance: SERTRALINE HYDROCHLORIDE
     Indication: Ill-defined disorder
     Dosage: 50 MILLIGRAM, QD (ONE TO BE TAKEN DAILY)
     Route: 065
     Dates: start: 20240815
  2. EASYHALER [Concomitant]
     Indication: Ill-defined disorder
     Dosage: INHALE 1 DOSE AS NEEDED UP TO FOUR TIMES DAILY
     Route: 055
     Dates: start: 20240805
  3. PROPRANOLOL [Concomitant]
     Active Substance: PROPRANOLOL HYDROCHLORIDE
     Indication: Anxiety
     Dosage: TID (TAKE ONE OR TWO 3 TIMES/DAY FOR ANXIETY)
     Route: 065
     Dates: start: 20240805
  4. AMOXICILLIN [Concomitant]
     Active Substance: AMOXICILLIN
     Indication: Ill-defined disorder
     Dosage: 1 DOSAGE FORM, TID (TAKE ONE CAPSULE THREE TIMES A DAY FOR 5 DAYS)
     Route: 065
     Dates: start: 20240829
  5. FLUOXETINE [Concomitant]
     Active Substance: FLUOXETINE HYDROCHLORIDE
     Indication: Ill-defined disorder
     Dosage: 1 DOSAGE FORM, AM (TAKE ONE CAPSULE IN THE MORNING)
     Route: 065
     Dates: start: 20240829

REACTIONS (3)
  - Pyrexia [Recovered/Resolved]
  - Feeling hot [Unknown]
  - Malaise [Recovered/Resolved]
